FAERS Safety Report 18283542 (Version 1)
Quarter: 2020Q3

REPORT INFORMATION
  Report Type: Spontaneous
  Country: US (occurrence: US)
  Receive Date: 20200918
  Receipt Date: 20200918
  Transmission Date: 20201103
  Serious: No
  Sender: FDA-Public Use
  Company Number: US-BAYER-2020-199417

PATIENT
  Age: 72 Year
  Sex: Male

DRUGS (2)
  1. LOTRIMIN ULTRA ANTIFUNGAL [Suspect]
     Active Substance: BUTENAFINE HYDROCHLORIDE
     Indication: THERAPEUTIC SKIN CARE TOPICAL
     Dosage: USED ONCE A DAY FOR A WEEK THEN BREAK FO DOSE
     Route: 061
     Dates: start: 202008, end: 202008
  2. LOFIN [METFORMIN HYDROCHLORIDE] [Concomitant]

REACTIONS (2)
  - Expired product administered [Unknown]
  - Product physical consistency issue [None]

NARRATIVE: CASE EVENT DATE: 202008
